FAERS Safety Report 6385698-3 (Version None)
Quarter: 2009Q4

REPORT INFORMATION
  Report Type: 
  Country: None (occurrence: None)
  Receive Date: 20091002
  Receipt Date: 20081008
  Transmission Date: 20100525
  Serious: No
  Sender: FDA-Public Use
  Company Number: US-ASTRAZENECA-2008UW22176

PATIENT
  Age: 73 Year
  Sex: Female

DRUGS (2)
  1. ARIMIDEX [Suspect]
     Route: 048
     Dates: start: 20070501
  2. FOSAMAX [Concomitant]

REACTIONS (2)
  - ALOPECIA [None]
  - CHROMATURIA [None]
